FAERS Safety Report 7294660-8 (Version None)
Quarter: 2011Q1

REPORT INFORMATION
  Report Type: 
  Country: None (occurrence: None)
  Receive Date: 20110204
  Receipt Date: 20110118
  Transmission Date: 20110831
  Serious: Yes (Other)
  Sender: FDA-Public Use
  Company Number: ACO_21365_2010

PATIENT
  Age: 61 Year
  Sex: Male

DRUGS (2)
  1. AMPYRA [Suspect]
     Indication: PRODUCT USED FOR UNKNOWN INDICATION
     Dosage: 10 MG, BID, ORAL
  2. ANTIHYPERTENSIVES [Concomitant]

REACTIONS (6)
  - DRUG INTERACTION [None]
  - HEART RATE IRREGULAR [None]
  - HYPERTENSION [None]
  - MEMORY IMPAIRMENT [None]
  - CONSTIPATION [None]
  - NAUSEA [None]
